FAERS Safety Report 6695325-3 (Version None)
Quarter: 2010Q2

REPORT INFORMATION
  Report Type: 
  Country: None (occurrence: None)
  Receive Date: 20100423
  Receipt Date: 20100407
  Transmission Date: 20101027
  Serious: Yes (Hospitalization)
  Sender: FDA-Public Use
  Company Number: IE-JNJFOC-20100402016

PATIENT

DRUGS (2)
  1. INFLIXIMAB [Suspect]
     Indication: ARTHRITIS
     Route: 042
  2. AZATHIOPRINE [Concomitant]

REACTIONS (1)
  - DISSEMINATED TUBERCULOSIS [None]
